FAERS Safety Report 10314390 (Version 1)
Quarter: 2014Q3

REPORT INFORMATION
  Report Type: Spontaneous
  Country: US (occurrence: US)
  Receive Date: 20140718
  Receipt Date: 20140718
  Transmission Date: 20150326
  Serious: Yes (Other)
  Sender: FDA-Public Use
  Company Number: US-GLAXOSMITHKLINE-A1081387A

PATIENT
  Age: 63 Year
  Sex: Male

DRUGS (6)
  1. NICORETTE [Suspect]
     Active Substance: NICOTINE
     Indication: SMOKING CESSATION THERAPY
     Route: 002
  2. WELLBUTRIN [Suspect]
     Active Substance: BUPROPION HYDROCHLORIDE
     Route: 048
  3. BLOOD PRESSURE MEDICATION [Concomitant]
     Active Substance: UNSPECIFIED INGREDIENT
  4. NICORETTE [Suspect]
     Active Substance: NICOTINE
     Indication: SMOKING CESSATION THERAPY
     Route: 002
  5. POLYPHARMACY [Concomitant]
     Active Substance: UNSPECIFIED INGREDIENT
  6. CHOLESTEROL REDUCING AGENT [Concomitant]

REACTIONS (7)
  - Speech disorder [Unknown]
  - Anger [Recovered/Resolved]
  - Drug administration error [Unknown]
  - Cranial nerve injury [Recovered/Resolved]
  - Somnolence [Recovered/Resolved]
  - VIIth nerve paralysis [Unknown]
  - Toxicity to various agents [Unknown]
